FAERS Safety Report 18617556 (Version 1)
Quarter: 2020Q4

REPORT INFORMATION
  Report Type: Spontaneous
  Country: US (occurrence: US)
  Receive Date: 20201214
  Receipt Date: 20201214
  Transmission Date: 20210114
  Serious: No
  Sender: FDA-Public Use
  Company Number: None

PATIENT
  Age: 68 Year
  Sex: Male

DRUGS (1)
  1. FORTEO [Suspect]
     Active Substance: TERIPARATIDE
     Indication: OSTEOPOROSIS
     Route: 058
     Dates: start: 20201208, end: 20201214

REACTIONS (3)
  - Pruritus [None]
  - Gastrooesophageal reflux disease [None]
  - Headache [None]

NARRATIVE: CASE EVENT DATE: 20201208
